FAERS Safety Report 25098671 (Version 2)
Quarter: 2025Q2

REPORT INFORMATION
  Report Type: Spontaneous
  Country: FR (occurrence: FR)
  Receive Date: 20250320
  Receipt Date: 20250423
  Transmission Date: 20250716
  Serious: Yes (Hospitalization, Disabling, Other)
  Sender: Kenvue
  Company Number: None

PATIENT

DRUGS (40)
  1. CETIRIZINE HYDROCHLORIDE [Suspect]
     Active Substance: CETIRIZINE HYDROCHLORIDE
     Indication: Product used for unknown indication
     Dosage: FILM-COATED TABLET; 10 MG, 1 DF, Q4
     Route: 065
  2. CETIRIZINE HYDROCHLORIDE [Suspect]
     Active Substance: CETIRIZINE HYDROCHLORIDE
     Indication: Product used for unknown indication
     Route: 065
  3. ACETAMINOPHEN [Suspect]
     Active Substance: ACETAMINOPHEN
     Indication: Product used for unknown indication
     Route: 065
  4. SMECTA [Suspect]
     Active Substance: MONTMORILLONITE
     Indication: Product used for unknown indication
     Route: 065
  5. PROGESTERONE [Suspect]
     Active Substance: PROGESTERONE
     Indication: Product used for unknown indication
     Route: 065
  6. PREGABALIN [Suspect]
     Active Substance: PREGABALIN
     Indication: Product used for unknown indication
     Route: 048
  7. MIRTAZAPINE [Suspect]
     Active Substance: MIRTAZAPINE
     Indication: Product used for unknown indication
     Dosage: 15 MILLIGRAM, ONCE A DAY; ARROW GENERIQUES 15 MG FI/30, (2 TABLETS IN THE EVENING FOR 3 MONTHS)
     Route: 048
  8. METEOSPASMYL (ALVERINE CITRATE\DIMETHICONE) [Suspect]
     Active Substance: ALVERINE CITRATE\DIMETHICONE
     Indication: Product used for unknown indication
     Route: 065
  9. METEOSPASMYL (ALVERINE CITRATE\DIMETHICONE) [Suspect]
     Active Substance: ALVERINE CITRATE\DIMETHICONE
     Route: 065
  10. LOCOID [Suspect]
     Active Substance: HYDROCORTISONE BUTYRATE
     Indication: Product used for unknown indication
     Route: 065
  11. CHLORMADINONE [Suspect]
     Active Substance: CHLORMADINONE
     Indication: Product used for unknown indication
     Route: 065
  12. BROMAZEPAM [Suspect]
     Active Substance: BROMAZEPAM
     Indication: Product used for unknown indication
     Dosage: 6 MG (6 MG TABS DOUBLE-SCORED 1 TBLT/30) 1/4 TABLET MORNING, NOON AND EVENING, FOR 3 MONTHS.
     Route: 048
  13. BROMAZEPAM [Suspect]
     Active Substance: BROMAZEPAM
     Dosage: 0.25 DOSAGE FORM, THRICE A DAY (8 HRS) (0.25 DF, TID);  TIME INTERVAL: 0.33333333 DAYS: ONE QUARTER
     Route: 048
  14. DAFALGAN [Suspect]
     Active Substance: ACETAMINOPHEN
     Indication: Product used for unknown indication
     Dosage: 4 DOSAGE FORM, ONCE A DAY (4 DF, QD)
     Route: 048
  15. GLYCERIN\MINERAL OIL\PETROLATUM [Suspect]
     Active Substance: GLYCERIN\MINERAL OIL\PETROLATUM
     Indication: Product used for unknown indication
     Route: 065
  16. IBUPROFEN [Suspect]
     Active Substance: IBUPROFEN
     Indication: Product used for unknown indication
     Dosage: 15 PERCENT, ONCE A DAY; MAKE 3 APPLICATIONS PER DAY
     Route: 003
  17. NOMEGESTROL ACETATE [Suspect]
     Active Substance: NOMEGESTROL ACETATE
     Indication: Ovarian cyst
     Dosage: 5 MILLIGRAM, ONCE A DAY (1 DF, QD)
     Route: 065
     Dates: start: 20150403
  18. NOMEGESTROL ACETATE [Suspect]
     Active Substance: NOMEGESTROL ACETATE
     Indication: Menstruation irregular
     Dosage: 5 MILLIGRAM, ONCE A DAY (1 DF, QD)
     Route: 065
     Dates: start: 20100621
  19. NOMEGESTROL ACETATE [Suspect]
     Active Substance: NOMEGESTROL ACETATE
     Dosage: 5 MILLIGRAM, ONCE A DAY (1 DF, QD)
     Route: 065
     Dates: start: 20170921
  20. NOMEGESTROL ACETATE [Suspect]
     Active Substance: NOMEGESTROL ACETATE
     Dosage: 5 MILLIGRAM, ONCE A DAY (1 DF, QD)
     Route: 065
     Dates: start: 20140505
  21. NOMEGESTROL ACETATE [Suspect]
     Active Substance: NOMEGESTROL ACETATE
     Dosage: 5 MILLIGRAM, ONCE A DAY (1 DF, QD)
     Route: 065
     Dates: start: 20181106, end: 20190117
  22. NOMEGESTROL ACETATE [Suspect]
     Active Substance: NOMEGESTROL ACETATE
     Dosage: 5 MILLIGRAM, ONCE A DAY (1 DF, QD)
     Route: 065
     Dates: start: 20170613
  23. NOMEGESTROL ACETATE [Suspect]
     Active Substance: NOMEGESTROL ACETATE
     Dosage: 5 MILLIGRAM, ONCE A DAY (1 DF, QD)
     Route: 065
     Dates: start: 20180329
  24. NOMEGESTROL ACETATE [Suspect]
     Active Substance: NOMEGESTROL ACETATE
     Dosage: 5 MILLIGRAM, ONCE A DAY (1 DF, QD)
     Route: 065
     Dates: start: 20130517
  25. NOMEGESTROL ACETATE [Suspect]
     Active Substance: NOMEGESTROL ACETATE
     Dosage: 5 MILLIGRAM, ONCE A DAY (1 DF, QD)
     Route: 065
     Dates: start: 20170307
  26. NOMEGESTROL ACETATE [Suspect]
     Active Substance: NOMEGESTROL ACETATE
     Dosage: 5 MILLIGRAM, ONCE A DAY (1 DF, QD)
     Route: 048
     Dates: start: 20171211
  27. NOMEGESTROL ACETATE [Suspect]
     Active Substance: NOMEGESTROL ACETATE
     Dosage: 5 MILLIGRAM, ONCE A DAY (1 DF, QD)
     Route: 065
     Dates: start: 20120514
  28. CHLORMADINONE ACETATE [Suspect]
     Active Substance: CHLORMADINONE ACETATE
     Indication: Menstruation irregular
     Dosage: 10 MILLIGRAM, ONCE A DAY; 1 DF , QD FOR 21 DAYS/MERCK , ONE TABLET PER DAY DURING 21 DAYS AND 7 DAYS
     Route: 065
     Dates: start: 20190806
  29. CHLORMADINONE ACETATE [Suspect]
     Active Substance: CHLORMADINONE ACETATE
     Indication: Ovarian cyst
     Dosage: 1 DOSAGE FORM, ONCE A DAY; 1 DF , QD FOR 21 DAYS
     Route: 065
     Dates: start: 20190715
  30. CHLORMADINONE ACETATE [Suspect]
     Active Substance: CHLORMADINONE ACETATE
     Indication: Product used for unknown indication
     Dosage: 1 DOSAGE FORM, ONCE A DAY; 1 DF , QD FOR 21 DAYS
     Route: 065
     Dates: start: 20190117
  31. CHLORMADINONE ACETATE [Suspect]
     Active Substance: CHLORMADINONE ACETATE
     Dosage: 10 MILLIGRAM, ONCE A DAY; 1 DF , QD FOR 21 DAYS/ONE TABLET PER DAY DURING 21 DAYS AND 7 DAYS OFF BY
     Route: 065
     Dates: start: 20100317, end: 20100621
  32. CHLORMADINONE ACETATE [Suspect]
     Active Substance: CHLORMADINONE ACETATE
     Route: 065
     Dates: start: 20170918
  33. CHLORMADINONE ACETATE [Suspect]
     Active Substance: CHLORMADINONE ACETATE
     Dosage: 10 MILLIGRAM, ONCE A DAY; ONE TABLET PER DAY DURING 21 DAYS AND 7 DAYS OFF BY MONTHS
     Route: 065
     Dates: start: 20191028
  34. CHLORMADINONE ACETATE [Suspect]
     Active Substance: CHLORMADINONE ACETATE
     Dosage: 5 MILLIGRAM, ONCE A DAY; ONE TABLET PER DAY DURING 21 DAYS AND 7 DAYS OFF BY MONTHS
     Route: 065
     Dates: start: 20140505
  35. LYRICA [Suspect]
     Active Substance: PREGABALIN
     Indication: Product used for unknown indication
     Dosage: 1 DOSAGE FORM, TWICE A DAY (12 HRS); 1 DF, BID
     Route: 048
  36. MIRTAZAPINE [Suspect]
     Active Substance: MIRTAZAPINE
     Indication: Product used for unknown indication
     Dosage: 30 MILLIGRAM, ONCE A DAY; TAKE 2 TABLETS IN THE EVENING, FOR 3 MONTHS ; ARROW GENERIQUES 15 MG FI/30
     Route: 048
  37. TRAMADOL HYDROCHLORIDE [Suspect]
     Active Substance: TRAMADOL HYDROCHLORIDE
     Indication: Complex regional pain syndrome
     Dosage: 150 MILLIGRAM, ONCE A DAY; 1 DF, QD
     Route: 048
  38. PREGABALIN [Suspect]
     Active Substance: PREGABALIN
     Indication: Product used for unknown indication
     Dosage: 1 DOSAGE FORM, TWICE A DAY; 1 DF, BID
     Route: 048
  39. TIAPRIDE HYDROCHLORIDE [Suspect]
     Active Substance: TIAPRIDE HYDROCHLORIDE
     Indication: Product used for unknown indication
     Dosage: 100 MILLIGRAM, ONCE A DAY; 100 MG (100 SCORED TABLET PLQ/20) 1 TABLET THE EVENING FOR 3 MONTHS
     Route: 048
  40. TIAPRIDE HYDROCHLORIDE [Suspect]
     Active Substance: TIAPRIDE HYDROCHLORIDE
     Dosage: 150 MG, QD (150 MG CAPSULE LP ONCE-DAILY 5) TAKE 1 CAPSULE IN THE EVENING FOR 3 MONTHS)
     Route: 048

REACTIONS (7)
  - Muscular weakness [Not Recovered/Not Resolved]
  - Pain in extremity [Not Recovered/Not Resolved]
  - Dizziness [Not Recovered/Not Resolved]
  - Meningioma [Unknown]
  - Epistaxis [Not Recovered/Not Resolved]
  - Headache [Not Recovered/Not Resolved]
  - Asthenia [Not Recovered/Not Resolved]

NARRATIVE: CASE EVENT DATE: 20211021
